FAERS Safety Report 23666480 (Version 1)
Quarter: 2024Q1

REPORT INFORMATION
  Report Type: Spontaneous
  Country: US (occurrence: US)
  Receive Date: 20240324
  Receipt Date: 20240324
  Transmission Date: 20240410
  Serious: No
  Sender: FDA-Public Use
  Company Number: US-Ironshore Pharmaceuticals Inc.-IRON20240052

PATIENT
  Sex: Male

DRUGS (1)
  1. JORNAY PM EXTENDED-RELEASE [Suspect]
     Active Substance: METHYLPHENIDATE HYDROCHLORIDE
     Indication: Attention deficit hyperactivity disorder
     Dosage: UNKNOWN
     Route: 048

REACTIONS (1)
  - Lethargy [Recovered/Resolved]
